FAERS Safety Report 7691494-7 (Version None)
Quarter: 2011Q3

REPORT INFORMATION
  Report Type: 
  Country: None (occurrence: None)
  Receive Date: 20110818
  Receipt Date: 20110729
  Transmission Date: 20111222
  Serious: Yes (Disabling)
  Sender: FDA-Public Use
  Company Number: FR-MPIJNJ-2011-00169

PATIENT

DRUGS (7)
  1. QUITAXON [Concomitant]
     Route: 048
  2. LEXOMIL [Concomitant]
     Route: 048
  3. VELCADE [Suspect]
     Indication: MULTIPLE MYELOMA
     Dosage: 1.9 MG, UNK
     Route: 042
     Dates: start: 20100614, end: 20101108
  4. LEKOVIT CA [Concomitant]
     Route: 048
  5. DEXAMETHASONE [Suspect]
     Dosage: 20 MG, UNK
     Route: 048
     Dates: start: 20100614
  6. AMITRIPTYLINE HCL [Concomitant]
     Route: 048
  7. ARANESP [Concomitant]
     Dosage: 150 UG, UNK
     Route: 058

REACTIONS (2)
  - DYSKINESIA [None]
  - BALANCE DISORDER [None]
